FAERS Safety Report 12013002 (Version 3)
Quarter: 2016Q1

REPORT INFORMATION
  Report Type: Report from Study
  Country: GR (occurrence: GR)
  Receive Date: 20160205
  Receipt Date: 20160219
  Transmission Date: 20160526
  Serious: Yes (Hospitalization)
  Sender: FDA-Public Use
  Company Number: GR-SA-2016SA017692

PATIENT
  Age: 39 Year
  Sex: Female

DRUGS (22)
  1. SEROQUEL [Concomitant]
     Active Substance: QUETIAPINE FUMARATE
     Indication: DRUG THERAPY
     Route: 048
     Dates: start: 2010
  2. XANAX [Concomitant]
     Active Substance: ALPRAZOLAM
     Indication: DRUG THERAPY
     Route: 048
     Dates: start: 201511
  3. VALTREX [Concomitant]
     Active Substance: VALACYCLOVIR HYDROCHLORIDE
     Indication: PROPHYLAXIS
     Route: 048
     Dates: start: 20160118
  4. APOTEL [Concomitant]
     Indication: PROPHYLAXIS
     Route: 042
     Dates: start: 20160118, end: 20160121
  5. SOLU-MEDROL [Concomitant]
     Active Substance: METHYLPREDNISOLONE SODIUM SUCCINATE
     Indication: PROPHYLAXIS
     Route: 042
     Dates: start: 20160118, end: 20160121
  6. FENISTIL [Concomitant]
     Active Substance: DIMETHINDENE
     Indication: PROPHYLAXIS
     Route: 042
     Dates: start: 20160118, end: 20160121
  7. ZIRTEK [Concomitant]
     Active Substance: CETIRIZINE HYDROCHLORIDE
     Indication: PROPHYLAXIS
     Route: 048
     Dates: start: 20160114
  8. DAKTARIN [Concomitant]
     Active Substance: MICONAZOLE NITRATE
     Route: 061
     Dates: start: 20160123
  9. LUMAREN [Concomitant]
     Indication: PROPHYLAXIS
     Route: 048
     Dates: start: 20160114
  10. LAMOTRIX [Concomitant]
     Active Substance: LAMOTRIGINE
     Indication: DRUG THERAPY
     Route: 048
     Dates: start: 2010
  11. APOTEL [Concomitant]
     Indication: PROPHYLAXIS
     Route: 042
     Dates: start: 20160124, end: 20160125
  12. LEMTRADA [Suspect]
     Active Substance: ALEMTUZUMAB
     Route: 042
     Dates: start: 20160118, end: 20160120
  13. LEMTRADA [Suspect]
     Active Substance: ALEMTUZUMAB
     Route: 042
     Dates: start: 20160121, end: 20160121
  14. MIOREL [Concomitant]
     Active Substance: THIOCOLCHICOSIDE
     Indication: DRUG THERAPY
     Route: 048
     Dates: start: 2008
  15. PERONTEN [Concomitant]
     Indication: DRUG THERAPY
     Route: 048
     Dates: start: 201111
  16. LORDIN [Concomitant]
     Active Substance: OMEPRAZOLE
     Indication: PROPHYLAXIS
     Route: 042
     Dates: start: 20160118, end: 20160121
  17. SPORANOX [Concomitant]
     Active Substance: ITRACONAZOLE
     Route: 048
     Dates: start: 20160123
  18. ESCITALOPRAM [Concomitant]
     Active Substance: ESCITALOPRAM OXALATE
     Indication: DRUG THERAPY
     Route: 048
     Dates: start: 201509
  19. XATRAL [Concomitant]
     Active Substance: ALFUZOSIN
     Indication: DRUG THERAPY
     Route: 048
     Dates: start: 2014
  20. BESPAR [Concomitant]
     Active Substance: BUSPIRONE HYDROCHLORIDE
     Indication: DRUG THERAPY
     Route: 048
     Dates: start: 2010
  21. SOLU-MEDROL [Concomitant]
     Active Substance: METHYLPREDNISOLONE SODIUM SUCCINATE
     Indication: PROPHYLAXIS
     Route: 042
     Dates: start: 20160122, end: 20160122
  22. ZOFRON [Concomitant]
     Active Substance: ONDANSETRON
     Indication: PROPHYLAXIS
     Route: 042
     Dates: start: 20160118, end: 20160121

REACTIONS (7)
  - Pyrexia [Recovered/Resolved]
  - C-reactive protein increased [Recovered/Resolved]
  - Bradycardia [Recovered/Resolved]
  - Stomatitis [Recovered/Resolved]
  - Bradycardia [Recovered/Resolved]
  - Pyrexia [Recovered/Resolved]
  - Leukocytosis [Recovered/Resolved]

NARRATIVE: CASE EVENT DATE: 20160118
